FAERS Safety Report 5024951-2 (Version None)
Quarter: 2006Q2

REPORT INFORMATION
  Report Type: 
  Country: None (occurrence: None)
  Receive Date: 20060607
  Receipt Date: 20060525
  Transmission Date: 20061013
  Serious: Yes (Hospitalization)
  Sender: FDA-Public Use
  Company Number: 2006P1000315

PATIENT
  Age: 28 Year
  Sex: Female

DRUGS (1)
  1. NICARDIPINE HYDROCHLORIDE [Suspect]
     Indication: PRE-ECLAMPSIA
     Dosage: 2 MG; QH; IV
     Route: 042
     Dates: start: 20060131, end: 20060201

REACTIONS (4)
  - CAESAREAN SECTION [None]
  - CONDITION AGGRAVATED [None]
  - DRUG EXPOSURE DURING PREGNANCY [None]
  - PRE-ECLAMPSIA [None]
